FAERS Safety Report 6394836-8 (Version None)
Quarter: 2009Q4

REPORT INFORMATION
  Report Type: 
  Country: None (occurrence: None)
  Receive Date: 20091006
  Receipt Date: 20090923
  Transmission Date: 20100525
  Serious: Yes (Hospitalization)
  Sender: FDA-Public Use
  Company Number: 001798

PATIENT

DRUGS (3)
  1. LACOSAMIDE [Suspect]
     Indication: EPILEPSY
     Dosage: (200 MG BID ORAL)
     Route: 048
     Dates: start: 20090204
  2. ATIVAN [Concomitant]
  3. TRILEPTAL [Concomitant]

REACTIONS (2)
  - CARDIAC FLUTTER [None]
  - HEART RATE IRREGULAR [None]
